FAERS Safety Report 14070908 (Version 2)
Quarter: 2017Q4

REPORT INFORMATION
  Report Type: Spontaneous
  Country: US (occurrence: US)
  Receive Date: 20171010
  Receipt Date: 20171121
  Transmission Date: 20180321
  Serious: No
  Sender: FDA-Public Use
  Company Number: US-JNJFOC-20170907281

PATIENT
  Age: 53 Year
  Sex: Male

DRUGS (6)
  1. METFORMIN HCL [Concomitant]
     Active Substance: METFORMIN HYDROCHLORIDE
     Dosage: OSMOTIC PUSH 24 HR BID
     Route: 048
  2. IMBRUVICA [Suspect]
     Active Substance: IBRUTINIB
     Indication: CHRONIC LYMPHOCYTIC LEUKAEMIA
     Route: 048
     Dates: start: 201606
  3. ATORVASTATIN CALCIUM. [Concomitant]
     Active Substance: ATORVASTATIN CALCIUM
     Route: 048
  4. DIOVAN [Concomitant]
     Active Substance: VALSARTAN
     Route: 048
  5. ASPIRIN. [Concomitant]
     Active Substance: ASPIRIN
     Route: 048
  6. FENOFIBRATE. [Concomitant]
     Active Substance: FENOFIBRATE
     Dosage: 43 MG, AS DIRECTED
     Route: 048

REACTIONS (10)
  - Lymphadenopathy [Recovered/Resolved]
  - Limb injury [Recovering/Resolving]
  - Hypertriglyceridaemia [Recovering/Resolving]
  - Anaemia [Recovered/Resolved]
  - Hypertension [Recovering/Resolving]
  - Thrombocytopenia [Recovered/Resolved]
  - Lymphocytosis [Recovering/Resolving]
  - Type 2 diabetes mellitus [Recovered/Resolved]
  - Oedema peripheral [Recovering/Resolving]
  - Cough [Recovering/Resolving]

NARRATIVE: CASE EVENT DATE: 201606
